FAERS Safety Report 4520216-3 (Version None)
Quarter: 2004Q4

REPORT INFORMATION
  Report Type: 
  Country: None (occurrence: None)
  Receive Date: 20041207
  Receipt Date: 20041125
  Transmission Date: 20050328
  Serious: Yes (Death)
  Sender: FDA-Public Use
  Company Number: US-BRISTOL-MYERS SQUIBB COMPANY-12780698

PATIENT
  Age: 43 Year
  Sex: Male

DRUGS (8)
  1. IFOSFAMIDE [Suspect]
     Indication: HODGKIN'S DISEASE NODULAR SCLEROSIS STAGE UNSPECIFIED
     Route: 042
  2. MESNA [Suspect]
     Indication: HODGKIN'S DISEASE NODULAR SCLEROSIS STAGE UNSPECIFIED
     Route: 042
  3. CISPLATIN [Suspect]
     Indication: HODGKIN'S DISEASE NODULAR SCLEROSIS STAGE UNSPECIFIED
     Route: 042
  4. MITOXANTRONE [Suspect]
     Indication: HODGKIN'S DISEASE NODULAR SCLEROSIS STAGE UNSPECIFIED
     Route: 042
  5. ARA-C [Suspect]
     Indication: HODGKIN'S DISEASE NODULAR SCLEROSIS STAGE UNSPECIFIED
     Route: 042
  6. METHYLPREDNISOLONE [Suspect]
     Indication: HODGKIN'S DISEASE NODULAR SCLEROSIS STAGE UNSPECIFIED
     Route: 042
  7. VANCOMYCIN [Concomitant]
  8. GENTAMICIN [Concomitant]

REACTIONS (2)
  - RENAL FAILURE ACUTE [None]
  - WOUND INFECTION [None]
